FAERS Safety Report 6710658-X (Version None)
Quarter: 2010Q2

REPORT INFORMATION
  Report Type: 
  Country: None (occurrence: None)
  Receive Date: 20100504
  Receipt Date: 20100504
  Transmission Date: 20101027
  Serious: Yes (Other)
  Sender: FDA-Public Use
  Company Number: None

PATIENT
  Sex: Male
  Weight: 80.7403 kg

DRUGS (1)
  1. VENLAFAXINE [Suspect]
     Indication: PROPHYLAXIS
     Dates: start: 20100422

REACTIONS (6)
  - BACK PAIN [None]
  - CYSTITIS [None]
  - INFECTION [None]
  - NEUTROPHIL COUNT ABNORMAL [None]
  - PAIN [None]
  - URINARY TRACT INFECTION [None]
